FAERS Safety Report 7849937-1 (Version None)
Quarter: 2011Q4

REPORT INFORMATION
  Report Type: 
  Country: None (occurrence: None)
  Receive Date: 20111021
  Receipt Date: 20111015
  Transmission Date: 20120403
  Serious: Yes (Life-Threatening, Hospitalization, Other)
  Sender: FDA-Public Use
  Company Number: CL-351-2011

PATIENT
  Age: 67 Year
  Sex: Female

DRUGS (1)
  1. DIPYRIDAMOLE [Suspect]

REACTIONS (9)
  - ASCITES [None]
  - HAEMOGLOBIN DECREASED [None]
  - HYPOTENSION [None]
  - ARTERIAL RUPTURE [None]
  - GLOMERULONEPHRITIS RAPIDLY PROGRESSIVE [None]
  - MICROSCOPIC POLYANGIITIS [None]
  - MUSCLE HAEMORRHAGE [None]
  - HAEMORRHAGE [None]
  - TACHYCARDIA [None]
